FAERS Safety Report 8514133-1 (Version None)
Quarter: 2012Q3

REPORT INFORMATION
  Report Type: 
  Country: None (occurrence: None)
  Receive Date: 20120717
  Receipt Date: 20120703
  Transmission Date: 20120928
  Serious: No
  Sender: FDA-Public Use
  Company Number: CA-JNJFOC-20120401265

PATIENT
  Sex: Female
  Weight: 85.73 kg

DRUGS (1)
  1. REMICADE [Suspect]
     Indication: CROHN'S DISEASE
     Route: 042
     Dates: start: 20110713

REACTIONS (4)
  - RESPIRATORY TRACT CONGESTION [None]
  - NASOPHARYNGITIS [None]
  - BODY TEMPERATURE INCREASED [None]
  - MALAISE [None]
